FAERS Safety Report 5134769-8 (Version None)
Quarter: 2006Q4

REPORT INFORMATION
  Report Type: 
  Country: None (occurrence: None)
  Receive Date: 20060831
  Receipt Date: 20060508
  Transmission Date: 20070319
  Serious: No
  Sender: FDA-Public Use
  Company Number: 2006-BP-05142BP

PATIENT
  Age: 74 Year
  Sex: Female

DRUGS (7)
  1. SPIRIVA [Suspect]
     Indication: CHRONIC OBSTRUCTIVE PULMONARY DISEASE
     Dosage: 18 MG (18 MG,1 IN 1 D),IH
     Route: 055
     Dates: start: 20060419
  2. GLYBURIDE [Concomitant]
  3. LOPRESSOR [Concomitant]
  4. AVANDIA [Concomitant]
  5. COZAAR [Concomitant]
  6. CRESTOR [Concomitant]
  7. ALBUTEROL [Concomitant]

REACTIONS (3)
  - MICTURITION URGENCY [None]
  - MUSCLE TIGHTNESS [None]
  - SLEEP DISORDER [None]
